FAERS Safety Report 24110494 (Version 1)
Quarter: 2024Q3

REPORT INFORMATION
  Report Type: Spontaneous
  Country: AR (occurrence: AR)
  Receive Date: 20240718
  Receipt Date: 20240718
  Transmission Date: 20241016
  Serious: Yes (Death)
  Sender: PFIZER
  Company Number: AR-PFIZER INC-202400218592

PATIENT
  Age: 48 Year
  Sex: Female

DRUGS (1)
  1. BRAFTOVI [Suspect]
     Active Substance: ENCORAFENIB
     Indication: Colorectal cancer metastatic
     Dosage: 300 MG (4 DAILY DOSIS OF 75MG)
     Dates: start: 20230720

REACTIONS (1)
  - Death [Fatal]
